FAERS Safety Report 18195302 (Version 1)
Quarter: 2020Q3

REPORT INFORMATION
  Report Type: Spontaneous
  Country: US (occurrence: US)
  Receive Date: 20200826
  Receipt Date: 20200826
  Transmission Date: 20201103
  Serious: No
  Sender: FDA-Public Use
  Company Number: US-CIPLA LTD.-2020US04093

PATIENT

DRUGS (12)
  1. DORZOLAMIDE [Concomitant]
     Active Substance: DORZOLAMIDE
     Indication: EYE DISORDER
     Dosage: 22.3 MG/EVERY DAY, FROM 3?4 YEARS
     Route: 047
  2. LUMIGAN [Concomitant]
     Active Substance: BIMATOPROST
     Indication: CATARACT
     Dosage: 0.01 PERCENT, QD, EVERY NIGHT FROM FEW YEARS
     Route: 047
  3. GABAPENTIN. [Concomitant]
     Active Substance: GABAPENTIN
     Indication: NEURALGIA
     Dosage: 600 MILLIGRAM, TID, FROM MORE THAN A YEAR
     Route: 065
  4. DICLOFENAC [Suspect]
     Active Substance: DICLOFENAC
     Indication: JOINT SWELLING
  5. POTASSIUM [Concomitant]
     Active Substance: POTASSIUM
     Indication: MINERAL SUPPLEMENTATION
     Dosage: 10 MILLIEQUIVALENT, QD, FROM MORE THAN A YEAR
     Route: 065
  6. BRIMONIDINE TARTRATE. [Concomitant]
     Active Substance: BRIMONIDINE TARTRATE
     Indication: EYE DISORDER
     Dosage: 0.2 PERCENT, TID, FROM FEW YEARS
     Route: 047
  7. DICLOFENAC [Suspect]
     Active Substance: DICLOFENAC
     Indication: PERIPHERAL SWELLING
     Dosage: UNK, TID
     Route: 061
  8. DILTIAZEM. [Concomitant]
     Active Substance: DILTIAZEM
     Indication: HYPERTENSION
     Dosage: 300MG/EVERY DAY, FROM MORE THAN A YEAR
     Route: 065
  9. TRAZODONE [Concomitant]
     Active Substance: TRAZODONE HYDROCHLORIDE
     Indication: SLEEP DISORDER
     Dosage: 50MG/EVERY DAY, FROM FEW MONTHS
     Route: 065
  10. LOSARTAN. [Concomitant]
     Active Substance: LOSARTAN
     Indication: HYPERTENSION
     Dosage: 40MG/EVERY DAY, FROM MORE THAN 2 YEARS
     Route: 065
  11. MORPHINE SULPHATE [Concomitant]
     Active Substance: MORPHINE SULFATE
     Indication: BACK PAIN
     Dosage: 30 MILLIGRAM, BID FROM MORE THAN A YEAR
     Route: 065
  12. RHOPRESSA [Concomitant]
     Active Substance: NETARSUDIL MESYLATE
     Indication: EYE DISORDER
     Dosage: 0.02 PERCENT, QD, EVERY NIGHT FROM MORE THAN A YEAR
     Route: 047

REACTIONS (1)
  - Off label use [Unknown]
